FAERS Safety Report 21675843 (Version 3)
Quarter: 2023Q1

REPORT INFORMATION
  Report Type: Report from Study
  Country: FR (occurrence: FR)
  Receive Date: 20221202
  Receipt Date: 20230130
  Transmission Date: 20230418
  Serious: Yes (Hospitalization)
  Sender: FDA-Public Use
  Company Number: FR-TAKEDA-2022TUS092593

PATIENT
  Age: 8 Year
  Sex: Male

DRUGS (60)
  1. TEDUGLUTIDE [Suspect]
     Active Substance: TEDUGLUTIDE
     Indication: Short-bowel syndrome
     Dosage: 1.26 MILLIGRAM, QD
     Route: 042
     Dates: start: 20220120, end: 20220214
  2. TEDUGLUTIDE [Suspect]
     Active Substance: TEDUGLUTIDE
     Indication: Short-bowel syndrome
     Dosage: 1.26 MILLIGRAM, QD
     Route: 042
     Dates: start: 20220120, end: 20220214
  3. TEDUGLUTIDE [Suspect]
     Active Substance: TEDUGLUTIDE
     Indication: Short-bowel syndrome
     Dosage: 1.26 MILLIGRAM, QD
     Route: 042
     Dates: start: 20220120, end: 20220214
  4. TEDUGLUTIDE [Suspect]
     Active Substance: TEDUGLUTIDE
     Indication: Short-bowel syndrome
     Dosage: 1.26 MILLIGRAM, QD
     Route: 042
     Dates: start: 20220120, end: 20220214
  5. TEDUGLUTIDE [Suspect]
     Active Substance: TEDUGLUTIDE
     Dosage: 0.645 MILLIGRAM, QD
     Route: 042
     Dates: start: 20220223, end: 20220227
  6. TEDUGLUTIDE [Suspect]
     Active Substance: TEDUGLUTIDE
     Dosage: 0.645 MILLIGRAM, QD
     Route: 042
     Dates: start: 20220223, end: 20220227
  7. TEDUGLUTIDE [Suspect]
     Active Substance: TEDUGLUTIDE
     Dosage: 0.645 MILLIGRAM, QD
     Route: 042
     Dates: start: 20220223, end: 20220227
  8. TEDUGLUTIDE [Suspect]
     Active Substance: TEDUGLUTIDE
     Dosage: 0.645 MILLIGRAM, QD
     Route: 042
     Dates: start: 20220223, end: 20220227
  9. TEDUGLUTIDE [Suspect]
     Active Substance: TEDUGLUTIDE
     Dosage: 1.29 MILLIGRAM, QD
     Route: 042
     Dates: start: 20220228, end: 20220808
  10. TEDUGLUTIDE [Suspect]
     Active Substance: TEDUGLUTIDE
     Dosage: 1.29 MILLIGRAM, QD
     Route: 042
     Dates: start: 20220228, end: 20220808
  11. TEDUGLUTIDE [Suspect]
     Active Substance: TEDUGLUTIDE
     Dosage: 1.29 MILLIGRAM, QD
     Route: 042
     Dates: start: 20220228, end: 20220808
  12. TEDUGLUTIDE [Suspect]
     Active Substance: TEDUGLUTIDE
     Dosage: 1.29 MILLIGRAM, QD
     Route: 042
     Dates: start: 20220228, end: 20220808
  13. TEDUGLUTIDE [Suspect]
     Active Substance: TEDUGLUTIDE
     Dosage: 2.02 MILLIGRAM, QD
     Route: 042
     Dates: start: 20220809
  14. TEDUGLUTIDE [Suspect]
     Active Substance: TEDUGLUTIDE
     Dosage: 2.02 MILLIGRAM, QD
     Route: 042
     Dates: start: 20220809
  15. TEDUGLUTIDE [Suspect]
     Active Substance: TEDUGLUTIDE
     Dosage: 2.02 MILLIGRAM, QD
     Route: 042
     Dates: start: 20220809
  16. TEDUGLUTIDE [Suspect]
     Active Substance: TEDUGLUTIDE
     Dosage: 2.02 MILLIGRAM, QD
     Route: 042
     Dates: start: 20220809
  17. URSODIOL [Concomitant]
     Active Substance: URSODIOL
     Indication: Deficiency of bile secretion
     Dosage: 500 MILLIGRAM, QD
     Route: 048
     Dates: start: 202201
  18. AMIKACIN [Concomitant]
     Active Substance: AMIKACIN
     Indication: Staphylococcal infection
     Dosage: 20 MILLIGRAM/KILOGRAM, QD
     Route: 042
     Dates: start: 20220214, end: 20220221
  19. TARGOCID [Concomitant]
     Active Substance: TEICOPLANIN
     Indication: Staphylococcal infection
     Dosage: 10 MILLIGRAM/KILOGRAM, QD
     Route: 042
     Dates: start: 20220214, end: 20220221
  20. TARGOCID [Concomitant]
     Active Substance: TEICOPLANIN
     Indication: Staphylococcal infection
     Dosage: 10 MILLIGRAM/KILOGRAM, QD
     Route: 042
     Dates: start: 20201230, end: 20210103
  21. TARGOCID [Concomitant]
     Active Substance: TEICOPLANIN
     Dosage: 10 MILLIGRAM/KILOGRAM, QD
     Route: 042
     Dates: start: 20201227, end: 20210101
  22. ACETAMINOPHEN [Concomitant]
     Active Substance: ACETAMINOPHEN
     Indication: Pyrexia
     Dosage: UNK UNK, QID
     Route: 048
     Dates: start: 20220213, end: 20220214
  23. ACETAMINOPHEN [Concomitant]
     Active Substance: ACETAMINOPHEN
     Indication: Pain
     Dosage: 15 MILLIGRAM/KILOGRAM
     Route: 042
     Dates: start: 20201227, end: 20201228
  24. ACETAMINOPHEN [Concomitant]
     Active Substance: ACETAMINOPHEN
     Dosage: 15 MILLIGRAM/KILOGRAM
     Route: 048
     Dates: start: 20210321, end: 20210323
  25. ACETAMINOPHEN [Concomitant]
     Active Substance: ACETAMINOPHEN
     Dosage: 1 INTERNATIONAL UNIT/KILOGRAM, QID
     Route: 048
     Dates: start: 20220213, end: 20220214
  26. CEFPODOXIME [Concomitant]
     Active Substance: CEFPODOXIME
     Indication: Ear infection
     Dosage: UNK UNK, BID
     Route: 048
     Dates: start: 20181127, end: 20181203
  27. Otipax [Concomitant]
     Indication: Ear infection
     Dosage: 4 GTT DROPS, QD
     Route: 050
     Dates: start: 20181127, end: 20181203
  28. VANCOMYCIN [Concomitant]
     Active Substance: VANCOMYCIN
     Indication: Staphylococcal infection
     Dosage: UNK
     Route: 042
     Dates: start: 20190725, end: 20190729
  29. AMIKACIN SULFATE [Concomitant]
     Active Substance: AMIKACIN SULFATE
     Indication: Staphylococcal infection
     Dosage: UNK
     Route: 042
     Dates: start: 20190725, end: 20190729
  30. AMIKACIN SULFATE [Concomitant]
     Active Substance: AMIKACIN SULFATE
     Indication: Viral infection
     Dosage: UNK
     Route: 042
     Dates: start: 20200611, end: 20200614
  31. AMIKACIN SULFATE [Concomitant]
     Active Substance: AMIKACIN SULFATE
     Indication: Staphylococcal infection
     Dosage: 20 MILLIGRAM/KILOGRAM, QD
     Route: 042
     Dates: start: 20201230, end: 20210103
  32. AMIKACIN SULFATE [Concomitant]
     Active Substance: AMIKACIN SULFATE
     Indication: Staphylococcal infection
     Dosage: 20 MILLIGRAM/KILOGRAM, QD
     Route: 042
     Dates: start: 20201227, end: 20210101
  33. OXACILLIN SODIUM [Concomitant]
     Active Substance: OXACILLIN SODIUM
     Indication: Staphylococcal infection
     Dosage: UNK
     Route: 042
     Dates: start: 20190729, end: 20190814
  34. CEFTRIAXONE SODIUM [Concomitant]
     Active Substance: CEFTRIAXONE SODIUM
     Indication: Staphylococcal infection
     Dosage: UNK
     Route: 042
     Dates: start: 20190814, end: 20190824
  35. PHOCYTAN [Concomitant]
     Active Substance: .ALPHA.-GLUCOSE-1-PHOSPHATE
     Indication: Hypophosphataemia
     Dosage: UNK
     Route: 065
     Dates: start: 20190725, end: 20190803
  36. LOVENOX [Concomitant]
     Active Substance: ENOXAPARIN SODIUM
     Indication: Thrombosis
     Dosage: 0.2 MILLILITER, QD
     Route: 030
     Dates: start: 20190731, end: 20190913
  37. LOVENOX [Concomitant]
     Active Substance: ENOXAPARIN SODIUM
     Dosage: 0.3 MILLILITER, QD
     Route: 030
     Dates: start: 20190913
  38. WARFARIN SODIUM [Concomitant]
     Active Substance: WARFARIN SODIUM
     Indication: Thrombosis
     Dosage: 3 MILLIGRAM, QD
     Route: 065
     Dates: start: 20190829, end: 20190913
  39. WARFARIN SODIUM [Concomitant]
     Active Substance: WARFARIN SODIUM
     Dosage: 8 MILLIGRAM, QD
     Route: 065
     Dates: start: 20190913
  40. WARFARIN SODIUM [Concomitant]
     Active Substance: WARFARIN SODIUM
     Dosage: 8 MILLIGRAM, QD
     Route: 065
     Dates: start: 201909, end: 2019
  41. WARFARIN SODIUM [Concomitant]
     Active Substance: WARFARIN SODIUM
     Dosage: 6 MILLIGRAM, QD
     Route: 065
  42. ALBUTEROL [Concomitant]
     Active Substance: ALBUTEROL
     Indication: Dependence on oxygen therapy
     Dosage: UNK
     Route: 050
     Dates: start: 20190729, end: 20190807
  43. ESOMEPRAZOLE [Concomitant]
     Active Substance: ESOMEPRAZOLE
     Indication: Vomiting
     Dosage: 20 MILLIGRAM, QD
     Route: 048
  44. ESOMEPRAZOLE [Concomitant]
     Active Substance: ESOMEPRAZOLE
     Indication: Abdominal pain
     Dosage: 20 MILLIGRAM, QD
     Route: 048
     Dates: start: 20210218, end: 202103
  45. FAMOTIDINE [Concomitant]
     Active Substance: FAMOTIDINE
     Indication: Vomiting
     Dosage: 40 MILLIGRAM, QD
     Route: 042
  46. FAMOTIDINE [Concomitant]
     Active Substance: FAMOTIDINE
     Indication: Abdominal pain
     Dosage: 40 MILLIGRAM, QD
     Route: 042
     Dates: start: 20210105
  47. PIPERACILLIN SODIUM\TAZOBACTAM SODIUM [Concomitant]
     Active Substance: PIPERACILLIN SODIUM\TAZOBACTAM SODIUM
     Indication: Viral infection
     Dosage: UNK
     Route: 042
     Dates: start: 20200611, end: 20200614
  48. AMOXICILLIN [Concomitant]
     Active Substance: AMOXICILLIN
     Indication: Nasopharyngitis
     Dosage: UNK
     Route: 065
     Dates: start: 20200408, end: 20200429
  49. AMOXICILLIN [Concomitant]
     Active Substance: AMOXICILLIN
     Dosage: UNK
     Route: 048
     Dates: start: 202103, end: 20210309
  50. NALBUPHINE HYDROCHLORIDE [Concomitant]
     Active Substance: NALBUPHINE HYDROCHLORIDE
     Indication: Pain
     Dosage: UNK
     Route: 042
     Dates: start: 20201228, end: 20201229
  51. NALBUPHINE HYDROCHLORIDE [Concomitant]
     Active Substance: NALBUPHINE HYDROCHLORIDE
     Dosage: UNK
     Route: 042
     Dates: start: 20210212, end: 20210215
  52. NALBUPHINE HYDROCHLORIDE [Concomitant]
     Active Substance: NALBUPHINE HYDROCHLORIDE
     Dosage: UNK
     Route: 065
     Dates: start: 20210323, end: 20210329
  53. PERFALGAN [Concomitant]
     Active Substance: ACETAMINOPHEN
     Indication: Pain
     Dosage: UNK
     Route: 042
     Dates: start: 20210212, end: 20210215
  54. PERFALGAN [Concomitant]
     Active Substance: ACETAMINOPHEN
     Dosage: UNK
     Route: 065
     Dates: start: 20210323, end: 20210329
  55. OMEPRAZOLE [Concomitant]
     Active Substance: OMEPRAZOLE
     Indication: Gastrooesophageal reflux disease
     Dosage: 25 MILLIGRAM, QD
     Route: 042
     Dates: start: 20210212, end: 20210215
  56. ALBUMIN HUMAN [Concomitant]
     Active Substance: ALBUMIN HUMAN
     Indication: Overlap syndrome
     Dosage: UNK UNK, QD
     Route: 042
     Dates: start: 20201229, end: 20201229
  57. FUROSEMIDE [Concomitant]
     Active Substance: FUROSEMIDE
     Indication: Hypertension
     Dosage: UNK UNK, BID
     Route: 042
     Dates: start: 20201229, end: 20201229
  58. FUROSEMIDE [Concomitant]
     Active Substance: FUROSEMIDE
     Indication: Oedema
  59. PHLOROGLUCINOL [Concomitant]
     Active Substance: PHLOROGLUCINOL
     Indication: Pain
     Dosage: UNK UNK, QD
     Route: 048
     Dates: start: 20210321, end: 20210323
  60. POLARAMINE [Concomitant]
     Active Substance: DEXCHLORPHENIRAMINE MALEATE
     Indication: Pruritus
     Dosage: UNK UNK, BID
     Route: 042
     Dates: start: 20201227, end: 202101

REACTIONS (1)
  - Hyperthermia [Recovered/Resolved]

NARRATIVE: CASE EVENT DATE: 20221010
